FAERS Safety Report 9941397 (Version 1)
Quarter: 2014Q1

REPORT INFORMATION
  Report Type: Report from Study
  Country: US (occurrence: US)
  Receive Date: 20140303
  Receipt Date: 20140303
  Transmission Date: 20141002
  Serious: No
  Sender: FDA-Public Use
  Company Number: US-ABBVIE-13P-163-1040755-00

PATIENT
  Age: 51 Year
  Sex: Male

DRUGS (4)
  1. HUMIRA [Suspect]
     Indication: PSORIASIS
  2. HUMIRA [Suspect]
     Dosage: MAINTENANCE DOSING
  3. HUMIRA [Suspect]
     Dosage: ON AND OFF, 1 IN 3 WK OR 1 IN 1 M
  4. TALCONEX [Concomitant]
     Indication: PSORIASIS

REACTIONS (3)
  - Arthritis [Unknown]
  - Inappropriate schedule of drug administration [Unknown]
  - Rash maculo-papular [Unknown]
